FAERS Safety Report 18199763 (Version 1)
Quarter: 2020Q3

REPORT INFORMATION
  Report Type: Spontaneous
  Country: CN (occurrence: CN)
  Receive Date: 20200826
  Receipt Date: 20200826
  Transmission Date: 20201103
  Serious: Yes (Hospitalization)
  Sender: FDA-Public Use
  Company Number: CN-BAYER-2020-173016

PATIENT
  Age: 76 Year
  Sex: Male
  Weight: 62 kg

DRUGS (2)
  1. ARBIDOL [Suspect]
     Active Substance: UMIFENOVIR
     Indication: PNEUMONIA
     Dosage: 0.2 G, TID
     Route: 048
     Dates: start: 20200714, end: 20200718
  2. AVELOX [Suspect]
     Active Substance: MOXIFLOXACIN HYDROCHLORIDE
     Indication: PNEUMONIA
     Dosage: 0.4 G, QD
     Route: 041
     Dates: start: 20200714, end: 20200717

REACTIONS (1)
  - Drug-induced liver injury [Recovering/Resolving]

NARRATIVE: CASE EVENT DATE: 20200717
